FAERS Safety Report 21781950 (Version 4)
Quarter: 2023Q1

REPORT INFORMATION
  Report Type: Report from Study
  Country: IN (occurrence: IN)
  Receive Date: 20221227
  Receipt Date: 20230329
  Transmission Date: 20230417
  Serious: Yes (Other)
  Sender: FDA-Public Use
  Company Number: IN-002147023-NVSC2021IN227059

PATIENT
  Age: 56 Year
  Sex: Female

DRUGS (9)
  1. ALPELISIB [Suspect]
     Active Substance: ALPELISIB
     Indication: Breast cancer metastatic
     Dosage: 300 MG, QD
     Route: 065
     Dates: start: 20210913, end: 20210926
  2. ALPELISIB [Suspect]
     Active Substance: ALPELISIB
     Indication: PIK3CA-activated mutation
     Dosage: 250 MG, QD
     Route: 065
     Dates: start: 20210927, end: 202111
  3. ALPELISIB [Suspect]
     Active Substance: ALPELISIB
     Dosage: 300 MG, QD
     Route: 048
     Dates: start: 202109
  4. ALPELISIB [Suspect]
     Active Substance: ALPELISIB
     Dosage: 200 MG, QD
     Route: 065
     Dates: start: 202111
  5. ALPELISIB [Suspect]
     Active Substance: ALPELISIB
     Dosage: 250 MG, QD
     Route: 065
     Dates: start: 202111
  6. ALPELISIB [Suspect]
     Active Substance: ALPELISIB
     Dosage: 200 MG, QD
     Route: 065
     Dates: start: 20220907
  7. ALPELISIB [Suspect]
     Active Substance: ALPELISIB
     Dosage: 200 MG, QD
     Route: 065
     Dates: start: 20221209
  8. ALPELISIB [Suspect]
     Active Substance: ALPELISIB
     Dosage: 200 MG, QD
     Route: 065
     Dates: start: 20230208
  9. ALPELISIB [Suspect]
     Active Substance: ALPELISIB
     Dosage: 200 MG, QD
     Route: 048
     Dates: start: 20230321

REACTIONS (15)
  - Malignant neoplasm progression [Unknown]
  - Breast cancer metastatic [Unknown]
  - Blood glucose increased [Unknown]
  - Inflammation [Unknown]
  - Nodule [Unknown]
  - Metastases to liver [Unknown]
  - Metastases to bone [Unknown]
  - Hyperglycaemia [Recovered/Resolved]
  - Hyperglycaemia [Recovered/Resolved]
  - Hyperglycaemia [Not Recovered/Not Resolved]
  - Dysgeusia [Recovered/Resolved]
  - Asthenia [Recovered/Resolved]
  - Asthenia [Unknown]
  - Hyperglycaemia [Recovered/Resolved]
  - Dysgeusia [Recovered/Resolved]

NARRATIVE: CASE EVENT DATE: 20210901
